FAERS Safety Report 25742365 (Version 1)
Quarter: 2025Q3

REPORT INFORMATION
  Report Type: Spontaneous
  Country: US (occurrence: US)
  Receive Date: 20250829
  Receipt Date: 20250829
  Transmission Date: 20251021
  Serious: No
  Sender: ROCHE
  Company Number: US-ROCHE-10000368325

PATIENT
  Age: 19 Year
  Sex: Female
  Weight: 61.23 kg

DRUGS (2)
  1. XOLAIR [Suspect]
     Active Substance: OMALIZUMAB
     Indication: Urticaria
     Route: 057
  2. XOLAIR [Suspect]
     Active Substance: OMALIZUMAB
     Indication: Hypersensitivity

REACTIONS (5)
  - Accidental exposure to product [Unknown]
  - Product packaging issue [Unknown]
  - Device issue [Unknown]
  - Off label use [Unknown]
  - No adverse event [Unknown]

NARRATIVE: CASE EVENT DATE: 20250810
